FAERS Safety Report 7036755-X (Version None)
Quarter: 2010Q4

REPORT INFORMATION
  Report Type: 
  Country: None (occurrence: None)
  Receive Date: 20101011
  Receipt Date: 20101001
  Transmission Date: 20110411
  Serious: Yes (Other)
  Sender: FDA-Public Use
  Company Number: US-ELI_LILLY_AND_COMPANY-US201010000453

PATIENT
  Sex: Female
  Weight: 81.633 kg

DRUGS (5)
  1. BYETTA [Suspect]
     Indication: TYPE 2 DIABETES MELLITUS
     Dosage: 5 UG, 2/D
     Route: 058
  2. BYETTA [Suspect]
     Dosage: 10 UG, 2/D
     Route: 058
  3. METFORMIN [Concomitant]
     Indication: PRODUCT USED FOR UNKNOWN INDICATION
  4. DIGOXIN [Concomitant]
     Indication: CARDIOMYOPATHY
     Dosage: UNK, DAILY (1/D)
     Route: 048
  5. BENICAR [Concomitant]
     Indication: CARDIOMYOPATHY
     Dosage: UNK, DAILY (1/D)
     Route: 048

REACTIONS (8)
  - CARDIOMYOPATHY [None]
  - CONTUSION [None]
  - DECREASED APPETITE [None]
  - DRUG DOSE OMISSION [None]
  - FALL [None]
  - NAUSEA [None]
  - VOMITING [None]
  - WEIGHT DECREASED [None]
